FAERS Safety Report 21469341 (Version 1)
Quarter: 2022Q4

REPORT INFORMATION
  Report Type: Report from Study
  Country: IN (occurrence: IN)
  Receive Date: 20221018
  Receipt Date: 20221018
  Transmission Date: 20230113
  Serious: Yes (Other)
  Sender: FDA-Public Use
  Company Number: IN-UCBSA-2022057267

PATIENT
  Sex: Male

DRUGS (4)
  1. KEPPRA [Suspect]
     Active Substance: LEVETIRACETAM
     Indication: Seizure
     Dosage: 250 MILLIGRAM, 2X/DAY (BID)
     Route: 048
     Dates: start: 20220731
  2. TEGRETOL [Concomitant]
     Active Substance: CARBAMAZEPINE
     Indication: Seizure
  3. VALPROATE SODIUM [Concomitant]
     Active Substance: VALPROATE SODIUM
     Indication: Seizure
  4. LACOSAM [Concomitant]
     Indication: Seizure

REACTIONS (7)
  - Seizure [Recovered/Resolved]
  - Mental disorder [Unknown]
  - Head injury [Not Recovered/Not Resolved]
  - Fall [Unknown]
  - Fear [Unknown]
  - Eating disorder [Unknown]
  - Abnormal behaviour [Unknown]

NARRATIVE: CASE EVENT DATE: 20220101
